FAERS Safety Report 23151388 (Version 1)
Quarter: 2023Q4

REPORT INFORMATION
  Report Type: Spontaneous
  Country: US (occurrence: US)
  Receive Date: 20231107
  Receipt Date: 20231107
  Transmission Date: 20240110
  Serious: No
  Sender: FDA-Public Use
  Company Number: US-OPELLA-2023OHG006423

PATIENT
  Sex: Male

DRUGS (2)
  1. DULCOLAX SOFT CHEWS MIXED BERRY [Suspect]
     Active Substance: MAGNESIUM HYDROXIDE
     Indication: Constipation
     Dosage: TAKEN EVERY OTHER DAY OR HE SKIPS TWO DAYS
     Route: 048
  2. DULCOLAX LIQUID (MAGNESIUM HYDROXIDE) [Suspect]
     Active Substance: MAGNESIUM HYDROXIDE
     Indication: Constipation
     Dosage: STRENGTH: 1200MG/15ML
     Route: 048

REACTIONS (3)
  - Intentional dose omission [Unknown]
  - No adverse event [Unknown]
  - Therapeutic response decreased [Unknown]
